APPROVED DRUG PRODUCT: EDEX
Active Ingredient: ALPROSTADIL
Strength: 0.02MG/VIAL
Dosage Form/Route: INJECTABLE;INJECTION
Application: N020649 | Product #006
Applicant: ENDO OPERATIONS LTD
Approved: Jul 30, 1998 | RLD: Yes | RS: Yes | Type: RX